FAERS Safety Report 4599271-0 (Version None)
Quarter: 2005Q1

REPORT INFORMATION
  Report Type: 
  Country: None (occurrence: None)
  Receive Date: 20050302
  Receipt Date: 20010301
  Transmission Date: 20050727
  Serious: Yes (Other)
  Sender: FDA-Public Use
  Company Number: 2001-DE-U0017

PATIENT
  Age: 90 Year
  Sex: Male

DRUGS (4)
  1. MIRAPEX [Suspect]
     Indication: PARKINSONISM
     Dosage: 0.36 MG (0.18 MG, 1 TA BID); PO
     Route: 048
     Dates: start: 20010202, end: 20010202
  2. SALUDOPIN (SEMBRINA-SALTUCIN) (NR) [Concomitant]
  3. PERIPLUM (NIMODIPINE) (NR) [Concomitant]
  4. CARDIOASPIRIN (ACETYLSALICYLIC ACID) (NR) [Concomitant]

REACTIONS (3)
  - COMA [None]
  - DISEASE RECURRENCE [None]
  - TRANSIENT ISCHAEMIC ATTACK [None]
